FAERS Safety Report 14156891 (Version 1)
Quarter: 2017Q4

REPORT INFORMATION
  Report Type: Spontaneous
  Country: US (occurrence: US)
  Receive Date: 20171103
  Receipt Date: 20171103
  Transmission Date: 20180321
  Serious: No
  Sender: FDA-Public Use
  Company Number: US-ASTRAZENECA-2017SF07423

PATIENT
  Age: 25494 Day
  Sex: Female
  Weight: 70.8 kg

DRUGS (1)
  1. BYETTA [Suspect]
     Active Substance: EXENATIDE
     Indication: TYPE 2 DIABETES MELLITUS
     Route: 058

REACTIONS (3)
  - Physical product label issue [Unknown]
  - Intentional dose omission [Unknown]
  - Vision blurred [Unknown]

NARRATIVE: CASE EVENT DATE: 20171018
